FAERS Safety Report 4806356-X (Version None)
Quarter: 2005Q4

REPORT INFORMATION
  Report Type: 
  Country: None (occurrence: None)
  Receive Date: 20051021
  Receipt Date: 20050927
  Transmission Date: 20060501
  Serious: Yes (Life-Threatening)
  Sender: FDA-Public Use
  Company Number: FR-ROCHE-419143

PATIENT
  Age: 43 Year
  Sex: Female
  Weight: 105 kg

DRUGS (3)
  1. PEGASYS [Suspect]
     Dosage: FORM REPORTED AS INJECTABLE SOLUTION
     Route: 058
     Dates: start: 20031101
  2. PEGASYS [Suspect]
     Route: 058
     Dates: start: 20040315
  3. COPEGUS [Suspect]
     Route: 048
     Dates: start: 20031101

REACTIONS (6)
  - ANTIBODY TEST POSITIVE [None]
  - HAEMATOMA [None]
  - HAEMATURIA [None]
  - HEMIPARESIS [None]
  - METRORRHAGIA [None]
  - THROMBOCYTOPENIA [None]
